FAERS Safety Report 14212992 (Version 4)
Quarter: 2018Q1

REPORT INFORMATION
  Report Type: Spontaneous
  Country: BR (occurrence: BR)
  Receive Date: 20171121
  Receipt Date: 20180121
  Transmission Date: 20180508
  Serious: Yes (Hospitalization, Other)
  Sender: FDA-Public Use
  Company Number: BR-BEH-2017085102

PATIENT
  Age: 11 Year
  Sex: Female
  Weight: 36 kg

DRUGS (7)
  1. HIZENTRA [Suspect]
     Active Substance: HUMAN IMMUNOGLOBULIN G
     Indication: HYPOGAMMAGLOBULINAEMIA
     Dosage: UNK
     Route: 058
     Dates: start: 20171020
  2. HIZENTRA [Suspect]
     Active Substance: HUMAN IMMUNOGLOBULIN G
     Dosage: 13 ML, TOT
     Route: 058
     Dates: start: 20171110, end: 20171110
  3. HIZENTRA [Suspect]
     Active Substance: HUMAN IMMUNOGLOBULIN G
     Dosage: 4 G, TOT, INFUSION TIME 6HRS
     Route: 058
     Dates: start: 20171122, end: 20171123
  4. TAZOBACTAM [Concomitant]
     Active Substance: TAZOBACTAM
     Indication: EAR INFECTION
     Route: 042
  5. PIPERACILLIN [Concomitant]
     Active Substance: PIPERACILLIN
     Indication: EAR INFECTION
     Dosage: UNK
     Route: 042
  6. HIZENTRA [Suspect]
     Active Substance: HUMAN IMMUNOGLOBULIN G
     Dosage: UNK
     Route: 058
     Dates: start: 20171110, end: 20171111
  7. FLUCONAZOL [Suspect]
     Active Substance: FLUCONAZOLE
     Indication: EAR INFECTION
     Dosage: 200MG/100ML
     Route: 042

REACTIONS (9)
  - Diarrhoea [Recovered/Resolved]
  - Somnolence [Recovered/Resolved]
  - Dehydration [Recovered/Resolved]
  - Lethargy [Recovered/Resolved]
  - Peripheral coldness [Recovered/Resolved]
  - Asthenia [Recovered/Resolved]
  - Hypotension [Recovered/Resolved]
  - Malaise [Recovered/Resolved]
  - Poor peripheral circulation [Recovered/Resolved]

NARRATIVE: CASE EVENT DATE: 20171109
